FAERS Safety Report 9142602 (Version 2)
Quarter: 2013Q2

REPORT INFORMATION
  Report Type: Spontaneous
  Country: FR (occurrence: FR)
  Receive Date: 20130306
  Receipt Date: 20130423
  Transmission Date: 20140414
  Serious: Yes (Other)
  Sender: FDA-Public Use
  Company Number: FR-ELI_LILLY_AND_COMPANY-FR201302008730

PATIENT
  Age: 58 Year
  Sex: Female
  Weight: 75 kg

DRUGS (9)
  1. CYMBALTA [Suspect]
     Indication: DEPRESSION
     Dosage: 30 MG, QD
     Route: 048
     Dates: start: 20121025, end: 20121204
  2. TOPALGIC [Concomitant]
     Indication: PAIN
     Dosage: 200 DF, UNKNOWN
  3. DAFALGAN [Concomitant]
     Indication: PAIN
     Dosage: 4 G, QD
  4. ESOMEPRAZOLE [Concomitant]
     Dosage: 40 MG, QD
  5. LAROXYL [Concomitant]
     Dosage: 40 DROPS, QD
  6. TRIMEBUTINE [Concomitant]
     Dosage: 300 MG, QD
  7. ATENOLOL [Concomitant]
     Indication: HYPERTENSION
     Dosage: 100 MG, QD
  8. ZANIDIP [Concomitant]
     Indication: HYPERTENSION
     Dosage: 10 MG, QD
  9. POLY-KARAYA [Concomitant]
     Dosage: UNK, UNKNOWN

REACTIONS (6)
  - Gamma-glutamyltransferase increased [Recovering/Resolving]
  - Food aversion [Recovered/Resolved]
  - Alanine aminotransferase increased [Recovered/Resolved]
  - Nausea [Recovered/Resolved]
  - Dizziness [Recovered/Resolved]
  - Asthenia [Recovered/Resolved]
